FAERS Safety Report 16324157 (Version 1)
Quarter: 2019Q2

REPORT INFORMATION
  Report Type: Other
  Country: DE (occurrence: DE)
  Receive Date: 20190517
  Receipt Date: 20190517
  Transmission Date: 20190711
  Serious: No
  Sender: FDA-Public Use
  Company Number: DE-LUPIN PHARMACEUTICALS INC.-2018-05935

PATIENT
  Age: 27 Year
  Sex: Male
  Weight: 80 kg

DRUGS (5)
  1. QUETIAPINE. [Suspect]
     Active Substance: QUETIAPINE
     Indication: FATIGUE
     Dosage: 200 MG, UNK
     Route: 048
     Dates: start: 201802
  2. QUETIAPINE. [Suspect]
     Active Substance: QUETIAPINE
     Indication: STRESS
  3. FLUVOXAMINE [Suspect]
     Active Substance: FLUVOXAMINE
     Indication: PRODUCT USED FOR UNKNOWN INDICATION
     Dosage: (OVER THE 10 YEARS CHANGING DOSAGE OF 100-300 MG, LAST FOR 3-4 YEARS 100MG-150MG)
     Route: 065
     Dates: start: 2008, end: 2018
  4. QUETIAPINE. [Suspect]
     Active Substance: QUETIAPINE
     Indication: DEPRESSION
  5. QUETIAPINE. [Suspect]
     Active Substance: QUETIAPINE
     Indication: OBSESSIVE-COMPULSIVE DISORDER

REACTIONS (5)
  - Drug withdrawal syndrome [Not Recovered/Not Resolved]
  - Parasomnia [Not Recovered/Not Resolved]
  - Sleep paralysis [Not Recovered/Not Resolved]
  - Anxiety [Not Recovered/Not Resolved]
  - Dyspnoea [Not Recovered/Not Resolved]

NARRATIVE: CASE EVENT DATE: 201802
